FAERS Safety Report 11443718 (Version 1)
Quarter: 2015Q3

REPORT INFORMATION
  Report Type: Spontaneous
  Country: US (occurrence: US)
  Receive Date: 20150901
  Receipt Date: 20150901
  Transmission Date: 20151125
  Serious: Yes (Other)
  Sender: FDA-Public Use
  Company Number: US-SEATTLE GENETICS-2015SGN01387

PATIENT

DRUGS (1)
  1. ADCETRIS [Suspect]
     Active Substance: BRENTUXIMAB VEDOTIN
     Indication: NON-HODGKIN^S LYMPHOMA
     Dosage: 91 UNK, Q3WEEKS
     Route: 065

REACTIONS (2)
  - Thrombocytopenic purpura [Unknown]
  - Immune thrombocytopenic purpura [None]

NARRATIVE: CASE EVENT DATE: 20150818
